FAERS Safety Report 23524620 (Version 2)
Quarter: 2024Q3

REPORT INFORMATION
  Report Type: Spontaneous
  Country: JP (occurrence: JP)
  Receive Date: 20240215
  Receipt Date: 20240819
  Transmission Date: 20241017
  Serious: Yes (Other)
  Sender: AMGEN
  Company Number: JP-DSJP-DSJ-2024-106139

PATIENT
  Sex: Female

DRUGS (1)
  1. DENOSUMAB [Suspect]
     Active Substance: DENOSUMAB
     Indication: Product used for unknown indication
     Dosage: UNK
     Route: 065

REACTIONS (4)
  - Cerebral infarction [Unknown]
  - Arrhythmia [Not Recovered/Not Resolved]
  - Atrial fibrillation [Not Recovered/Not Resolved]
  - Tonsillitis [Recovered/Resolved]

NARRATIVE: CASE EVENT DATE: 20240101
